FAERS Safety Report 11626570 (Version 1)
Quarter: 2015Q4

REPORT INFORMATION
  Report Type: Spontaneous
  Country: US (occurrence: US)
  Receive Date: 20151013
  Receipt Date: 20151013
  Transmission Date: 20160304
  Serious: Yes (Other)
  Sender: FDA-Public Use
  Company Number: US-ROCHE-1582996

PATIENT

DRUGS (38)
  1. VIOXX [Concomitant]
     Active Substance: ROFECOXIB
  2. CYMBALTA [Concomitant]
     Active Substance: DULOXETINE HYDROCHLORIDE
  3. DILAUDID [Concomitant]
     Active Substance: HYDROMORPHONE HYDROCHLORIDE
     Indication: SPINAL PAIN
     Dosage: 2 TABLETS
     Route: 048
  4. NAPROXEN. [Suspect]
     Active Substance: NAPROXEN
     Indication: PRODUCT USED FOR UNKNOWN INDICATION
     Route: 065
  5. SPIRIVA [Concomitant]
     Active Substance: TIOTROPIUM BROMIDE MONOHYDRATE
  6. RELPAX [Concomitant]
     Active Substance: ELETRIPTAN HYDROBROMIDE
  7. BREO ELLIPTA [Concomitant]
     Active Substance: FLUTICASONE FUROATE\VILANTEROL TRIFENATATE
     Dosage: 100 UG + 25 UG
     Route: 065
  8. ESTRATEST H.S. [Concomitant]
     Dosage: 0.625 MG + 1.25 MG
     Route: 065
  9. HEPARIN [Concomitant]
     Active Substance: HEPARIN SODIUM
  10. IBUPROFEN. [Concomitant]
     Active Substance: IBUPROFEN
  11. FENESIN [Concomitant]
     Active Substance: GUAIFENESIN
  12. MORPHINE [Concomitant]
     Active Substance: MORPHINE
  13. PROTONIX (UNITED STATES) [Concomitant]
  14. FENTANYL. [Concomitant]
     Active Substance: FENTANYL
  15. TETRACAINE. [Concomitant]
     Active Substance: TETRACAINE
  16. ONDANSETRON [Concomitant]
     Active Substance: ONDANSETRON
     Indication: NAUSEA
     Route: 065
  17. REMERON [Concomitant]
     Active Substance: MIRTAZAPINE
  18. PREVACID [Concomitant]
     Active Substance: LANSOPRAZOLE
  19. BENADRYL [Concomitant]
     Active Substance: DIPHENHYDRAMINE HYDROCHLORIDE
  20. COMBIVENT RESPIMAT [Concomitant]
     Active Substance: ALBUTEROL SULFATE\IPRATROPIUM BROMIDE
     Dosage: 20 UG + 100 UG, 2 INHALATIONS
     Route: 065
  21. PROMETHAZINE [Concomitant]
     Active Substance: PROMETHAZINE\PROMETHAZINE HYDROCHLORIDE
     Indication: NAUSEA
     Route: 065
  22. DILAUDID [Concomitant]
     Active Substance: HYDROMORPHONE HYDROCHLORIDE
     Indication: BONE PAIN
  23. PYRIDIUM [Concomitant]
     Active Substance: PHENAZOPYRIDINE
  24. PROCHLORPERAZINE. [Concomitant]
     Active Substance: PROCHLORPERAZINE
     Route: 065
  25. ASA [Concomitant]
     Active Substance: ASPIRIN
  26. ECOTRIN [Concomitant]
     Active Substance: ASPIRIN
  27. VOLTAREN [Concomitant]
     Active Substance: DICLOFENAC SODIUM
  28. NEXIUM [Concomitant]
     Active Substance: ESOMEPRAZOLE MAGNESIUM
  29. CARBOCAINE [Concomitant]
     Active Substance: MEPIVACAINE HYDROCHLORIDE
  30. OXYBUTYNIN [Concomitant]
     Active Substance: OXYBUTYNIN
  31. DUONEB [Concomitant]
     Active Substance: ALBUTEROL SULFATE\IPRATROPIUM BROMIDE
     Route: 065
  32. NASONEX [Concomitant]
     Active Substance: MOMETASONE FUROATE
     Dosage: 50UG/17G, 2 SPRAYS
     Route: 065
  33. RANITIDINE [Concomitant]
     Active Substance: RANITIDINE\RANITIDINE HYDROCHLORIDE
     Indication: GASTROOESOPHAGEAL REFLUX DISEASE
     Route: 048
  34. LIDOCAINE. [Concomitant]
     Active Substance: LIDOCAINE
  35. DILAUDID [Concomitant]
     Active Substance: HYDROMORPHONE HYDROCHLORIDE
     Indication: FIBROMYALGIA
  36. LYRICA [Concomitant]
     Active Substance: PREGABALIN
     Dosage: 2 CAPSULES
     Route: 065
  37. MOTRIN [Concomitant]
     Active Substance: IBUPROFEN
  38. MAXAIR [Concomitant]
     Active Substance: PIRBUTEROL ACETATE

REACTIONS (2)
  - Ulcer haemorrhage [Unknown]
  - Asthma [Unknown]
